FAERS Safety Report 10930980 (Version 1)
Quarter: 2015Q1

REPORT INFORMATION
  Report Type: Spontaneous
  Country: US (occurrence: None)
  Receive Date: 20150318
  Receipt Date: 20150318
  Transmission Date: 20150721
  Serious: Yes (Death)
  Sender: FDA-Public Use
  Company Number: None

PATIENT
  Age: 67 Year
  Sex: Male
  Weight: 74.5 kg

DRUGS (14)
  1. LIPITOR [Concomitant]
     Active Substance: ATORVASTATIN CALCIUM
  2. POLYETHYLENE GLYCOL (MIRALAX) [Concomitant]
  3. PLAVIX [Concomitant]
     Active Substance: CLOPIDOGREL BISULFATE
  4. OMEPRAZOLE (PRILOSEC) [Concomitant]
  5. LISINOPRIL (PRINIVIL,ZESTRIL) [Concomitant]
  6. MELATONIN [Concomitant]
     Active Substance: MELATONIN
  7. BUDESONIDE-FORMOTEROL (SYMBICORT) [Concomitant]
  8. NITROGLYCERIN (NITROSTAT) [Concomitant]
  9. SPIRONOLACTONE (ALDACTONE) [Concomitant]
  10. LEDIPASVIR/SOFOSBUVIR [Suspect]
     Active Substance: LEDIPASVIR\SOFOSBUVIR
     Indication: CHRONIC HEPATITIS C
     Route: 048
     Dates: start: 20150204, end: 20150314
  11. FUROSEMIDE (LASIX) [Concomitant]
  12. NADOLOL (CORGARD) [Concomitant]
  13. ASPIRIN 81 MG EC [Concomitant]
  14. COLCHICINE. [Concomitant]
     Active Substance: COLCHICINE

REACTIONS (2)
  - Coronary artery disease [None]
  - Cardiac disorder [None]

NARRATIVE: CASE EVENT DATE: 20150314
